FAERS Safety Report 9444416 (Version 1)
Quarter: 2013Q3

REPORT INFORMATION
  Report Type: Spontaneous
  Country: US (occurrence: None)
  Receive Date: 20130805
  Receipt Date: 20130805
  Transmission Date: 20140515
  Serious: Yes (Death)
  Sender: FDA-Public Use
  Company Number: UTC-035990

PATIENT
  Age: 66 Year
  Sex: Female

DRUGS (1)
  1. TYVASO [Suspect]
     Indication: PULMONARY ARTERIAL HYPERTENSION
     Dosage: UP TO 54 MCG ( 4 IN 1 D) INHALATION
     Dates: start: 20130326, end: 2013

REACTIONS (1)
  - Death [None]
